FAERS Safety Report 4424408-3 (Version None)
Quarter: 2004Q3

REPORT INFORMATION
  Report Type: 
  Country: None (occurrence: None)
  Receive Date: 20040812
  Receipt Date: 20040805
  Transmission Date: 20050211
  Serious: Yes (Other)
  Sender: FDA-Public Use
  Company Number: JP-JNJFOC-20040802991

PATIENT
  Age: 40 Year

DRUGS (2)
  1. RISPERDAL [Suspect]
     Route: 049
     Dates: start: 20040802, end: 20040805
  2. HALOPERIDOL [Concomitant]
     Route: 050

REACTIONS (1)
  - CEREBRAL HAEMORRHAGE [None]
